FAERS Safety Report 8492207-1 (Version None)
Quarter: 2012Q3

REPORT INFORMATION
  Report Type: 
  Country: None (occurrence: None)
  Receive Date: 20120706
  Receipt Date: 20120705
  Transmission Date: 20120928
  Serious: Yes (Death, Hospitalization)
  Sender: FDA-Public Use
  Company Number: US-ROCHE-1077637

PATIENT
  Sex: Male
  Weight: 68.554 kg

DRUGS (11)
  1. SIMVASTATIN [Concomitant]
     Route: 048
  2. OXALIPLATIN [Suspect]
     Indication: COLON CANCER STAGE IV
     Route: 042
     Dates: start: 20120426, end: 20120426
  3. ZOFRAN [Concomitant]
     Route: 048
  4. ASPIRIN [Concomitant]
     Route: 048
  5. MULTI-VITAMIN [Concomitant]
     Route: 048
  6. FERROUS SULFATE TAB [Concomitant]
     Route: 048
  7. METOPROLOL [Concomitant]
     Route: 048
  8. TAMSULOSIN HCL [Concomitant]
  9. AVODART [Concomitant]
     Dates: start: 20120301
  10. XELODA [Suspect]
     Indication: COLON CANCER STAGE IV
     Route: 048
     Dates: start: 20120426, end: 20120507
  11. VITAMIN D [Concomitant]
     Route: 048

REACTIONS (5)
  - DYSPNOEA [None]
  - DIARRHOEA [None]
  - RETCHING [None]
  - TACHYCARDIA [None]
  - DEATH [None]
